FAERS Safety Report 9224199 (Version 1)
Quarter: 2013Q1

REPORT INFORMATION
  Report Type: Spontaneous
  Country: US (occurrence: None)
  Receive Date: 20120914
  Receipt Date: 20120914
  Transmission Date: 20140127
  Serious: Yes (Other)
  Sender: FDA-Public Use
  Company Number: JPI-P-018121

PATIENT
  Sex: Female
  Weight: 79.38 kg

DRUGS (6)
  1. XYREM [Suspect]
     Indication: INSOMNIA
     Dosage: 9 GM (4.5 GM, 2 IN 1 D), ORAL
     Route: 048
     Dates: start: 20080724
  2. LEVOXYL (LEVOTHYROXINE) [Concomitant]
  3. ADDERALL (AMPHETAMINE AND DEXTROAMPHETAMINE) [Concomitant]
  4. LAMICTAL (LAMOTRIGINE) [Concomitant]
  5. SEROQUEL (QUETIAPINE), 50 MG [Concomitant]
  6. LITHIUM [Concomitant]

REACTIONS (2)
  - Back injury [None]
  - Back pain [None]
